FAERS Safety Report 7094250-6 (Version None)
Quarter: 2010Q4

REPORT INFORMATION
  Report Type: 
  Country: None (occurrence: None)
  Receive Date: 20101110
  Receipt Date: 20101104
  Transmission Date: 20110411
  Serious: Yes (Other)
  Sender: FDA-Public Use
  Company Number: US-PFIZER INC-2010140945

PATIENT
  Sex: Female

DRUGS (3)
  1. LYRICA [Suspect]
     Indication: CONNECTIVE TISSUE DISORDER
     Dosage: 75 MG, DAILY
     Route: 048
     Dates: start: 20101007, end: 20101101
  2. LYRICA [Suspect]
     Indication: PAIN
  3. LYRICA [Suspect]
     Indication: OSTEOPOROSIS

REACTIONS (6)
  - DIZZINESS [None]
  - HEART RATE INCREASED [None]
  - HYPERTENSION [None]
  - JOINT SWELLING [None]
  - OEDEMA [None]
  - TREMOR [None]
